FAERS Safety Report 15435890 (Version 2)
Quarter: 2019Q1

REPORT INFORMATION
  Report Type: Spontaneous
  Country: US (occurrence: US)
  Receive Date: 20180927
  Receipt Date: 20190318
  Transmission Date: 20190417
  Serious: No
  Sender: FDA-Public Use
  Company Number: US-SA-2018SA267435

PATIENT
  Age: 52 Year
  Sex: Male

DRUGS (1)
  1. AUBAGIO [Suspect]
     Active Substance: TERIFLUNOMIDE
     Indication: MULTIPLE SCLEROSIS
     Dosage: 14 MG, QD
     Route: 048
     Dates: start: 20180829

REACTIONS (4)
  - Musculoskeletal stiffness [Unknown]
  - Dizziness [Unknown]
  - Bladder disorder [Unknown]
  - Pain [Unknown]

NARRATIVE: CASE EVENT DATE: 20180920
